FAERS Safety Report 24233866 (Version 6)
Quarter: 2024Q4

REPORT INFORMATION
  Report Type: Spontaneous
  Country: US (occurrence: US)
  Receive Date: 20240821
  Receipt Date: 20241110
  Transmission Date: 20250114
  Serious: No
  Sender: SANOFI AVENTIS
  Company Number: US-SANOFI-02181986

PATIENT
  Age: 65 Year
  Sex: Female
  Weight: 98.88 kg

DRUGS (2)
  1. KEVZARA [Suspect]
     Active Substance: SARILUMAB
     Indication: Migraine
     Dosage: 200 MG, QOW
     Route: 058
     Dates: start: 20240724, end: 2024
  2. KEVZARA [Suspect]
     Active Substance: SARILUMAB
     Indication: Polymyalgia rheumatica

REACTIONS (8)
  - Injection site pain [Unknown]
  - Bone pain [Unknown]
  - Full blood count decreased [Unknown]
  - Hepatic steatosis [Unknown]
  - White blood cell count decreased [Recovering/Resolving]
  - Migraine [Unknown]
  - Product use in unapproved indication [Unknown]
  - Device operational issue [Unknown]

NARRATIVE: CASE EVENT DATE: 20240101
